FAERS Safety Report 10240042 (Version 2)
Quarter: 2014Q2

REPORT INFORMATION
  Report Type: Spontaneous
  Country: US (occurrence: US)
  Receive Date: 20140617
  Receipt Date: 20140617
  Transmission Date: 20141212
  Serious: No
  Sender: FDA-Public Use
  Company Number: 2014SP002237

PATIENT
  Sex: Female

DRUGS (2)
  1. DOXYCYCLINE [Suspect]
     Indication: PRODUCT USED FOR UNKNOWN INDICATION
  2. NAPROXEN [Suspect]
     Indication: PRODUCT USED FOR UNKNOWN INDICATION
     Dates: start: 20120726

REACTIONS (4)
  - Drug hypersensitivity [Unknown]
  - Nausea [Unknown]
  - Vomiting [Unknown]
  - Swelling [Unknown]
